FAERS Safety Report 4444350-1 (Version None)
Quarter: 2004Q3

REPORT INFORMATION
  Report Type: 
  Country: None (occurrence: None)
  Receive Date: 20040813
  Receipt Date: 20040127
  Transmission Date: 20050211
  Serious: Yes (Other)
  Sender: FDA-Public Use
  Company Number: M2004.7004

PATIENT
  Sex: Female

DRUGS (4)
  1. RIMACTANE [Suspect]
     Indication: TUBERCULOSIS
  2. ETHAMBUTOL HCL [Concomitant]
  3. PYRAZINAMIDE [Concomitant]
  4. PYRIDOXINE [Concomitant]

REACTIONS (1)
  - HEPATITIS [None]
